FAERS Safety Report 12285362 (Version 1)
Quarter: 2016Q2

REPORT INFORMATION
  Report Type: Spontaneous
  Country: US (occurrence: US)
  Receive Date: 20160420
  Receipt Date: 20160420
  Transmission Date: 20160815
  Serious: No
  Sender: FDA-Public Use
  Company Number: US-BAYER-2016-073269

PATIENT
  Sex: Female

DRUGS (1)
  1. MIDOL EXTENDED RELIEF [Suspect]
     Active Substance: NAPROXEN SODIUM
     Indication: DYSMENORRHOEA
     Dosage: 5 MIDOL IN FOUR HOURS
     Dates: start: 20160415, end: 20160415

REACTIONS (1)
  - Product use issue [None]

NARRATIVE: CASE EVENT DATE: 20160415
